FAERS Safety Report 20209025 (Version 5)
Quarter: 2023Q2

REPORT INFORMATION
  Report Type: Report from Study
  Country: CA (occurrence: CA)
  Receive Date: 20211220
  Receipt Date: 20230412
  Transmission Date: 20230722
  Serious: Yes (Other)
  Sender: FDA-Public Use
  Company Number: CA-ORGANON-O2112CAN001540

PATIENT
  Age: 35 Year
  Sex: Female
  Weight: 86 kg

DRUGS (1)
  1. NEXPLANON [Suspect]
     Active Substance: ETONOGESTREL
     Indication: Contraception
     Dosage: 1 ROD, EVERY 3 YEARS, LEFT ARM
     Route: 058
     Dates: start: 20211112, end: 20211207

REACTIONS (8)
  - Implant site necrosis [Recovered/Resolved]
  - Device expulsion [Recovered/Resolved]
  - Impaired healing [Recovered/Resolved]
  - Skin striae [Recovered/Resolved]
  - Medical device site laceration [Recovered/Resolved]
  - Medical device site scab [Recovered/Resolved]
  - Dysmenorrhoea [Recovered/Resolved]
  - Implant site bruising [Recovered/Resolved]

NARRATIVE: CASE EVENT DATE: 20211101
